FAERS Safety Report 5354671-6 (Version None)
Quarter: 2007Q2

REPORT INFORMATION
  Report Type: 
  Country: None (occurrence: None)
  Receive Date: 20070612
  Receipt Date: 20070608
  Transmission Date: 20071010
  Serious: Yes (Hospitalization)
  Sender: FDA-Public Use
  Company Number: AT-ROXANE LABORATORIES, INC-2007-DE-03377GD

PATIENT
  Age: 76 Year
  Sex: Female

DRUGS (3)
  1. METAMIZOLE [Suspect]
     Indication: PAIN
  2. METHOTREXATE [Suspect]
     Indication: RHEUMATOID ARTHRITIS
     Route: 058
  3. STEROIDS [Concomitant]
     Indication: RHEUMATOID ARTHRITIS
     Dosage: 5 MG OF PREDNISONE EQUIVALENT

REACTIONS (9)
  - BICYTOPENIA [None]
  - CANDIDIASIS [None]
  - CIRCULATORY COLLAPSE [None]
  - MOUTH ULCERATION [None]
  - MYELODYSPLASTIC SYNDROME [None]
  - PHARYNGEAL ULCERATION [None]
  - PHARYNGOLARYNGEAL PAIN [None]
  - PNEUMONIA [None]
  - STAPHYLOCOCCAL SEPSIS [None]
